FAERS Safety Report 18969635 (Version 1)
Quarter: 2021Q1

REPORT INFORMATION
  Report Type: Spontaneous
  Country: US (occurrence: US)
  Receive Date: 20210304
  Receipt Date: 20210304
  Transmission Date: 20210420
  Serious: No
  Sender: FDA-Public Use
  Company Number: US-LUPIN PHARMACEUTICALS INC.-2021-02570

PATIENT
  Age: 30 Year
  Sex: Female

DRUGS (2)
  1. ZOLPIDEM [Suspect]
     Active Substance: ZOLPIDEM TARTRATE
     Indication: ALTERED STATE OF CONSCIOUSNESS
     Dosage: 10 MILLIGRAM (ON DAY 17 OF ADMISSION)
     Route: 065
  2. ZOLPIDEM [Suspect]
     Active Substance: ZOLPIDEM TARTRATE
     Indication: BRAIN INJURY
     Dosage: 5 MILLIGRAM, QD (ON DAY 14 OF ADMISSION)
     Route: 065

REACTIONS (1)
  - Off label use [Unknown]
